FAERS Safety Report 7880648-2 (Version None)
Quarter: 2011Q4

REPORT INFORMATION
  Report Type: 
  Country: None (occurrence: None)
  Receive Date: 20111101
  Receipt Date: 20111025
  Transmission Date: 20120403
  Serious: Yes (Other)
  Sender: FDA-Public Use
  Company Number: CHPA2011US14885

PATIENT
  Age: 76 Year
  Sex: Female

DRUGS (7)
  1. DEXLANSOPRAZOLE [Concomitant]
     Indication: GASTROOESOPHAGEAL REFLUX DISEASE
     Dosage: UNK DF, UNK
     Route: 048
  2. ALBUTEROL [Concomitant]
     Indication: CHRONIC OBSTRUCTIVE PULMONARY DISEASE
     Dosage: UNK DF, UNK
  3. VITAMIN D [Concomitant]
     Indication: VITAMIN D DEFICIENCY
     Dosage: UNK DF, UNK
     Route: 048
  4. ANTIHYPERTENSIVES [Concomitant]
     Indication: HYPERTENSION
     Dosage: UNK DF, UNK
     Route: 048
  5. BENEFIBER SUGAR FREE [Suspect]
     Indication: CONSTIPATION
     Dosage: 1 DF, QD
     Route: 048
     Dates: start: 20110901
  6. VICODIN [Concomitant]
     Indication: PAIN
     Dosage: UNK DF, UNK
     Route: 048
     Dates: start: 20111024, end: 20111001
  7. ADVAIR DISKUS 100/50 [Concomitant]
     Indication: CHRONIC OBSTRUCTIVE PULMONARY DISEASE
     Dosage: UNK DF, UNK
     Route: 048

REACTIONS (6)
  - FEMORAL HERNIA REPAIR [None]
  - EXPIRED DRUG ADMINISTERED [None]
  - FEMORAL HERNIA [None]
  - CONSTIPATION [None]
  - PAIN [None]
  - INSOMNIA [None]
